FAERS Safety Report 7939167-7 (Version None)
Quarter: 2011Q4

REPORT INFORMATION
  Report Type: 
  Country: None (occurrence: None)
  Receive Date: 20111124
  Receipt Date: 20111114
  Transmission Date: 20120403
  Serious: Yes (Other)
  Sender: FDA-Public Use
  Company Number: GB-BRISTOL-MYERS SQUIBB COMPANY-16229536

PATIENT
  Age: 62 Year
  Sex: Male

DRUGS (3)
  1. ROPINIROLE [Suspect]
     Indication: RESTLESS LEGS SYNDROME
  2. SINEMET [Suspect]
     Indication: RESTLESS LEGS SYNDROME
  3. ROTIGOTINE [Suspect]
     Indication: RESTLESS LEGS SYNDROME

REACTIONS (1)
  - PATHOLOGICAL GAMBLING [None]
